FAERS Safety Report 23783494 (Version 2)
Quarter: 2024Q2

REPORT INFORMATION
  Report Type: Spontaneous
  Country: US (occurrence: US)
  Receive Date: 20240425
  Receipt Date: 20240507
  Transmission Date: 20240716
  Serious: No
  Sender: FDA-Public Use
  Company Number: US-AMGEN-USASP2024080416

PATIENT

DRUGS (2)
  1. RIABNI [Suspect]
     Active Substance: RITUXIMAB-ARRX
     Indication: Product used for unknown indication
     Dosage: 500 MILLIGRAM/50 MILLILITER
     Route: 065
  2. RIABNI [Suspect]
     Active Substance: RITUXIMAB-ARRX
     Dosage: 500 MILLIGRAM/50 MILLILITER
     Route: 065

REACTIONS (1)
  - Intercepted product preparation error [Unknown]

NARRATIVE: CASE EVENT DATE: 20240418
